FAERS Safety Report 15872281 (Version 1)
Quarter: 2019Q1

REPORT INFORMATION
  Report Type: Other
  Country: US (occurrence: US)
  Receive Date: 20190126
  Receipt Date: 20190126
  Transmission Date: 20190417
  Serious: No
  Sender: FDA-Public Use
  Company Number: US-ACORDA-ACO_147681_2018

PATIENT
  Age: 62 Year
  Sex: Male

DRUGS (2)
  1. DALFAMPRIDINE. [Suspect]
     Active Substance: DALFAMPRIDINE
     Indication: PRODUCT USED FOR UNKNOWN INDICATION
     Dosage: UNK
     Route: 065
     Dates: start: 20181017
  2. AMPYRA [Suspect]
     Active Substance: DALFAMPRIDINE
     Indication: MULTIPLE SCLEROSIS
     Dosage: 10 MG, Q 12 HRS
     Route: 048
     Dates: start: 20171218

REACTIONS (6)
  - Pruritus [Unknown]
  - Urinary incontinence [Unknown]
  - Muscle spasms [Unknown]
  - Rash [Recovered/Resolved]
  - Memory impairment [Unknown]
  - Dysarthria [Unknown]

NARRATIVE: CASE EVENT DATE: 20180201
